FAERS Safety Report 14235251 (Version 1)
Quarter: 2017Q4

REPORT INFORMATION
  Report Type: Spontaneous
  Country: US (occurrence: None)
  Receive Date: 20171128
  Receipt Date: 20171128
  Transmission Date: 20180321
  Serious: Yes (Other)
  Sender: FDA-Public Use
  Company Number: None

PATIENT
  Age: 60 Year
  Sex: Female

DRUGS (1)
  1. COPAXONE [Suspect]
     Active Substance: GLATIRAMER ACETATE
     Indication: MULTIPLE SCLEROSIS
     Dosage: 40MG 3 TIMES A WEEK
     Route: 058
     Dates: start: 20170501

REACTIONS (5)
  - Flushing [None]
  - Dyspnoea [None]
  - Palpitations [None]
  - Therapy change [None]
  - Anxiety [None]

NARRATIVE: CASE EVENT DATE: 20171128
